APPROVED DRUG PRODUCT: MEXATE-AQ PRESERVED
Active Ingredient: METHOTREXATE SODIUM
Strength: EQ 25MG BASE/ML
Dosage Form/Route: INJECTABLE;INJECTION
Application: A089887 | Product #001
Applicant: BRISTOL MYERS SQUIBB
Approved: Apr 14, 1989 | RLD: No | RS: No | Type: DISCN